FAERS Safety Report 14392291 (Version 1)
Quarter: 2018Q1

REPORT INFORMATION
  Report Type: Spontaneous
  Country: US (occurrence: US)
  Receive Date: 20180116
  Receipt Date: 20180116
  Transmission Date: 20180509
  Serious: Yes (Other)
  Sender: FDA-Public Use
  Company Number: US-PFIZER INC-2018016487

PATIENT
  Sex: Female

DRUGS (3)
  1. DULOXETINE. [Concomitant]
     Active Substance: DULOXETINE
     Dosage: 30MG
  2. LYRICA [Suspect]
     Active Substance: PREGABALIN
     Indication: NEURALGIA
     Dosage: 100MG (1 IN THE MORNING AND 2 AT NIGHT)
     Dates: start: 2010
  3. BUTRANS [Concomitant]
     Active Substance: BUPRENORPHINE
     Dosage: 7.5 PATCH; CHANGED WEEKLY

REACTIONS (6)
  - Weight increased [Unknown]
  - Lumbar vertebral fracture [Unknown]
  - Scar [Unknown]
  - Spinal pain [Unknown]
  - Body height decreased [Unknown]
  - Spinal disorder [Unknown]
